FAERS Safety Report 14679115 (Version 1)
Quarter: 2018Q1

REPORT INFORMATION
  Report Type: Spontaneous
  Country: JP (occurrence: JP)
  Receive Date: 20180326
  Receipt Date: 20180326
  Transmission Date: 20180509
  Serious: Yes (Death, Other)
  Sender: FDA-Public Use
  Company Number: JP-LUPIN PHARMACEUTICALS INC.-2018-02230

PATIENT
  Age: 66 Year
  Sex: Female
  Weight: 40.5 kg

DRUGS (8)
  1. OXALIPLATIN. [Concomitant]
     Active Substance: OXALIPLATIN
     Indication: RECTAL CANCER METASTATIC
     Dosage: 110 MG, (85MG/M^2)
     Route: 065
  2. METRONIDAZOLE. [Suspect]
     Active Substance: METRONIDAZOLE
     Indication: PELVIC ABSCESS
     Dosage: UNK, TOTAL BODY EXPOSURE WAS 2 G
     Route: 065
  3. CEFTRIAXONE. [Concomitant]
     Active Substance: CEFTRIAXONE
     Indication: PELVIC ABSCESS
     Dosage: UNK
     Route: 065
  4. 5-FLUOROURACIL                     /00098801/ [Suspect]
     Active Substance: FLUOROURACIL
     Indication: RECTAL CANCER METASTATIC
     Dosage: 530 MG INJECTION (400MG/M^2), 3200MG CONSTANT INFUSION AT 46 HOURS (2,400 MG/M^2)
     Route: 065
  5. PIPERACILLIN AND TAZOBACTAM [Concomitant]
     Active Substance: PIPERACILLIN SODIUM\TAZOBACTAM SODIUM
     Indication: PELVIC ABSCESS
     Dosage: UNK
     Route: 065
  6. CEFTRIAXONE. [Concomitant]
     Active Substance: CEFTRIAXONE
     Indication: HELICOBACTER INFECTION
  7. METRONIDAZOLE. [Suspect]
     Active Substance: METRONIDAZOLE
     Indication: HELICOBACTER INFECTION
  8. LEVOFOLINATE                       /06682101/ [Concomitant]
     Active Substance: LEVOLEUCOVORIN
     Indication: RECTAL CANCER METASTATIC
     Dosage: 265MG, (200MG/M^2)
     Route: 065

REACTIONS (2)
  - Toxicity to various agents [Fatal]
  - Leukoencephalopathy [Fatal]
